FAERS Safety Report 8424084-9 (Version None)
Quarter: 2012Q2

REPORT INFORMATION
  Report Type: 
  Country: None (occurrence: None)
  Receive Date: 20120608
  Receipt Date: 20111130
  Transmission Date: 20120825
  Serious: No
  Sender: FDA-Public Use
  Company Number: US-ASTRAZENECA-2010SE18721

PATIENT
  Age: 81 Year
  Sex: Female

DRUGS (9)
  1. PULMICORT [Suspect]
     Route: 055
     Dates: start: 20080101, end: 20100422
  2. PREDNISONE [Concomitant]
  3. IPRATROPIUM BROMIDE [Concomitant]
  4. SYMBICORT [Suspect]
     Dosage: 160/4.5 UG TWO PUFFS TWICE A DAY
     Route: 055
     Dates: start: 20100422
  5. MUCINEX [Concomitant]
  6. CRESTOR [Suspect]
     Route: 048
     Dates: start: 20061201
  7. PULMICORT [Suspect]
     Route: 055
  8. CRESTOR [Suspect]
     Route: 048
  9. ALBUTEROL [Concomitant]

REACTIONS (6)
  - CHOKING [None]
  - COUGH [None]
  - PNEUMONIA [None]
  - BACTERIAL INFECTION [None]
  - DYSPEPSIA [None]
  - INCREASED UPPER AIRWAY SECRETION [None]
